FAERS Safety Report 5318038-9 (Version None)
Quarter: 2007Q2

REPORT INFORMATION
  Report Type: 
  Country: None (occurrence: None)
  Receive Date: 20070504
  Receipt Date: 20070504
  Transmission Date: 20071010
  Serious: Yes (Hospitalization)
  Sender: FDA-Public Use
  Company Number: None

PATIENT
  Age: 72 Year
  Sex: Male
  Weight: 113.8529 kg

DRUGS (2)
  1. WARFARIN SODIUM [Suspect]
     Dosage: 7.5 MG M,F, 5MG ALL OTHER DAY PO
     Route: 048
     Dates: start: 19970101, end: 20070101
  2. AZITHROMYCIN [Concomitant]

REACTIONS (2)
  - ANAEMIA [None]
  - HAEMATOMA [None]
